FAERS Safety Report 7898960-X (Version None)
Quarter: 2011Q4

REPORT INFORMATION
  Report Type: 
  Country: None (occurrence: None)
  Receive Date: 20111107
  Receipt Date: 20111101
  Transmission Date: 20120403
  Serious: Yes (Death, Hospitalization)
  Sender: FDA-Public Use
  Company Number: US-ASTELLAS-2011US006456

PATIENT
  Sex: Male

DRUGS (1)
  1. ERLOTINIB HYDROCHLORIDE [Suspect]
     Indication: NON-SMALL CELL LUNG CANCER
     Dosage: 100 MG, UID/QD
     Route: 048
     Dates: start: 20110607

REACTIONS (6)
  - PNEUMONIA [None]
  - RESPIRATORY FAILURE [None]
  - RENAL FAILURE [None]
  - METASTASES TO LIVER [None]
  - SEPTIC SHOCK [None]
  - LUNG NEOPLASM MALIGNANT [None]
